FAERS Safety Report 9621141 (Version 1)
Quarter: 2013Q4

REPORT INFORMATION
  Report Type: Spontaneous
  Country: US (occurrence: US)
  Receive Date: 20131015
  Receipt Date: 20131015
  Transmission Date: 20140711
  Serious: Yes (Other)
  Sender: FDA-Public Use
  Company Number: US-ASTRAZENECA-2013SE74217

PATIENT
  Age: 77 Year
  Sex: Female
  Weight: 50.3 kg

DRUGS (10)
  1. ARIMIDEX [Suspect]
     Indication: BREAST CANCER METASTATIC
     Route: 048
     Dates: start: 2012, end: 201309
  2. HERCEPTIN [Suspect]
     Indication: BREAST CANCER FEMALE
     Route: 042
     Dates: start: 201301
  3. BIOTIN [Concomitant]
     Indication: SUPPLEMENTATION THERAPY
     Route: 048
  4. L GLUTATHIONE [Concomitant]
     Indication: SUPPLEMENTATION THERAPY
     Route: 048
  5. CALCIUM CITRATE [Concomitant]
     Indication: SUPPLEMENTATION THERAPY
     Route: 048
  6. D3 [Concomitant]
     Indication: SUPPLEMENTATION THERAPY
     Route: 048
  7. VITAMIN K2 [Concomitant]
     Indication: SUPPLEMENTATION THERAPY
     Route: 048
  8. ARTIC OILS [Concomitant]
     Indication: SUPPLEMENTATION THERAPY
     Dosage: 780 EC BID
     Route: 048
  9. COQ10 [Concomitant]
     Indication: SUPPLEMENTATION THERAPY
     Route: 048
  10. ACIDOPHILUS [Concomitant]
     Indication: SUPPLEMENTATION THERAPY
     Route: 048

REACTIONS (9)
  - Lymphadenopathy [Unknown]
  - Abdominal discomfort [Recovered/Resolved]
  - Pain in extremity [Recovering/Resolving]
  - Arthropathy [Recovering/Resolving]
  - Activities of daily living impaired [Recovering/Resolving]
  - Bone disorder [Unknown]
  - Diarrhoea [Not Recovered/Not Resolved]
  - Arthralgia [Recovering/Resolving]
  - Arthralgia [Recovering/Resolving]
